FAERS Safety Report 4595996-1 (Version None)
Quarter: 2005Q1

REPORT INFORMATION
  Report Type: 
  Country: None (occurrence: None)
  Receive Date: 20050224
  Receipt Date: 20050224
  Transmission Date: 20050727
  Serious: Yes (Hospitalization, Disabling)
  Sender: FDA-Public Use
  Company Number: None

PATIENT
  Sex: Male
  Weight: 96.4 kg

DRUGS (2)
  1. DALTEPARIN [Suspect]
     Indication: PULMONARY EMBOLISM
     Dosage: 100 IU  BID SUBCUTANEOUS
     Route: 058
     Dates: start: 20040227, end: 20040228
  2. PLAVIX [Suspect]
     Indication: CEREBROVASCULAR ACCIDENT
     Dosage: 75MG  QD ORAL
     Route: 048
     Dates: start: 20030701, end: 20040219

REACTIONS (9)
  - ANORECTAL DISORDER [None]
  - BACK PAIN [None]
  - CONFUSIONAL STATE [None]
  - DIPLEGIA [None]
  - EXTRADURAL HAEMATOMA [None]
  - HYPOTONIA [None]
  - POST PROCEDURAL HAEMORRHAGE [None]
  - SENSORY LOSS [None]
  - SPINAL CORD COMPRESSION [None]
